FAERS Safety Report 5766492-0 (Version None)
Quarter: 2008Q2

REPORT INFORMATION
  Report Type: 
  Country: None (occurrence: None)
  Receive Date: 20080606
  Receipt Date: 20080528
  Transmission Date: 20081010
  Serious: Yes (Hospitalization)
  Sender: FDA-Public Use
  Company Number: 2008SP010366

PATIENT
  Age: 46 Year
  Sex: Male

DRUGS (1)
  1. NOXAFIL [Suspect]
     Indication: ASPERGILLOSIS
     Dosage: 400 MG;BID;
     Dates: start: 20080123, end: 20080204

REACTIONS (4)
  - ASPERGILLOSIS [None]
  - CEREBRAL ASPERGILLOSIS [None]
  - DRUG INEFFECTIVE [None]
  - SKIN DISORDER [None]
